FAERS Safety Report 9235597 (Version 1)
Quarter: 2013Q2

REPORT INFORMATION
  Report Type: Spontaneous
  Country: US (occurrence: None)
  Receive Date: 20130416
  Receipt Date: 20130416
  Transmission Date: 20140414
  Serious: Yes (Other)
  Sender: FDA-Public Use
  Company Number: None

PATIENT
  Age: 33 Year
  Sex: Female
  Weight: 68 kg

DRUGS (3)
  1. NTG FRESH FOAMING CLEANSER 6.7OZ [Suspect]
     Dosage: 1 PUMP, 1X, TOPICAL
     Route: 061
     Dates: start: 20130319, end: 20130320
  2. NTG ALCOHOL FREE TONER [Suspect]
     Dosage: 1 ROUND COTTON, 1X TOPICAL
     Route: 061
  3. NTG MOIST SHN LIP GLS. 12OZ SPR SPRKL100 [Suspect]
     Dosage: SMOOTHED ONTO LIPS, 1X, TOPICAL
     Route: 061
     Dates: start: 20130319, end: 20130320

REACTIONS (6)
  - Erythema [None]
  - Burning sensation [None]
  - Lip swelling [None]
  - Erythema [None]
  - Lip blister [None]
  - Cheilitis [None]
